FAERS Safety Report 14007454 (Version 1)
Quarter: 2017Q3

REPORT INFORMATION
  Report Type: Spontaneous
  Country: US (occurrence: US)
  Receive Date: 20170925
  Receipt Date: 20170925
  Transmission Date: 20171128
  Serious: No
  Sender: FDA-Public Use
  Company Number: None

PATIENT
  Age: 37 Year
  Sex: Female
  Weight: 43.2 kg

DRUGS (2)
  1. LEVOTHYROXIN [Concomitant]
     Active Substance: LEVOTHYROXINE
  2. SERTRALINE HCL [Suspect]
     Active Substance: SERTRALINE HYDROCHLORIDE
     Indication: DEPRESSION
     Dosage: ?          QUANTITY:3 TABLET(S);?
     Route: 048
     Dates: start: 20170921, end: 20170924

REACTIONS (3)
  - Ageusia [None]
  - Anosmia [None]
  - Hypoaesthesia [None]

NARRATIVE: CASE EVENT DATE: 20170924
